FAERS Safety Report 14188183 (Version 2)
Quarter: 2017Q4

REPORT INFORMATION
  Report Type: Spontaneous
  Country: US (occurrence: RU)
  Receive Date: 20171114
  Receipt Date: 20171127
  Transmission Date: 20180321
  Serious: Yes (Other)
  Sender: FDA-Public Use
  Company Number: US-SUNOVION-2017SUN004874

PATIENT

DRUGS (3)
  1. AFOBAZOLE [Concomitant]
     Dosage: UNKNOWN
  2. NICORETTE [Concomitant]
     Active Substance: NICOTINE
     Dosage: UNKNOWN
  3. INDACATEROL [Suspect]
     Active Substance: INDACATEROL
     Indication: SMOKING CESSATION THERAPY
     Dosage: 1 DF, QD
     Route: 065
     Dates: start: 20171101

REACTIONS (7)
  - Dyspnoea [Unknown]
  - Tachycardia [Recovered/Resolved]
  - Tremor [Recovered/Resolved]
  - Cough [Unknown]
  - Product use in unapproved indication [Unknown]
  - Asphyxia [Unknown]
  - Oropharyngeal pain [Unknown]

NARRATIVE: CASE EVENT DATE: 20171101
